FAERS Safety Report 5604378-2 (Version None)
Quarter: 2008Q1

REPORT INFORMATION
  Report Type: 
  Country: None (occurrence: None)
  Receive Date: 20080128
  Receipt Date: 20080114
  Transmission Date: 20080703
  Serious: Yes (Other)
  Sender: FDA-Public Use
  Company Number: US-ELI_LILLY_AND_COMPANY-US200712003706

PATIENT
  Age: 35 Year
  Sex: Male

DRUGS (3)
  1. CYMBALTA [Suspect]
     Dosage: 30 MG, DAILY (1/D)
     Dates: start: 20070801, end: 20070101
  2. CYMBALTA [Suspect]
     Dosage: 20 MG, 2/D
     Dates: start: 20070101
  3. CLARITIN [Concomitant]

REACTIONS (3)
  - CARDIAC TAMPONADE [None]
  - FEELING ABNORMAL [None]
  - PERICARDITIS [None]
